FAERS Safety Report 12548681 (Version 1)
Quarter: 2016Q3

REPORT INFORMATION
  Report Type: Report from Study
  Country: US (occurrence: US)
  Receive Date: 20160712
  Receipt Date: 20160712
  Transmission Date: 20161109
  Serious: Yes (Other)
  Sender: FDA-Public Use
  Company Number: US-BAYER-2016-047982

PATIENT
  Age: 47 Year
  Sex: Male

DRUGS (3)
  1. ADEMPAS [Suspect]
     Active Substance: RIOCIGUAT
     Indication: PULMONARY ARTERIAL HYPERTENSION
     Dosage: 2.5 MG, TID
     Route: 048
     Dates: start: 20140806
  2. SELEXIPAG [Suspect]
     Active Substance: SELEXIPAG
     Dosage: UNK
     Dates: end: 20160629
  3. ADEMPAS [Suspect]
     Active Substance: RIOCIGUAT
     Indication: PULMONARY ARTERIAL HYPERTENSION
     Dosage: UNK
     Route: 048
     Dates: start: 20140606

REACTIONS (9)
  - Rash [None]
  - Headache [None]
  - Pancreatitis [None]
  - Abdominal discomfort [None]
  - Dyspnoea [None]
  - Lung disorder [None]
  - Pneumonia [None]
  - Dizziness [None]
  - Diarrhoea [None]

NARRATIVE: CASE EVENT DATE: 20160222
